FAERS Safety Report 5680160-5 (Version None)
Quarter: 2008Q1

REPORT INFORMATION
  Report Type: 
  Country: None (occurrence: None)
  Receive Date: 20080326
  Receipt Date: 20080128
  Transmission Date: 20080703
  Serious: Yes (Death)
  Sender: FDA-Public Use
  Company Number: US-TYCO HEALTHCARE/MALLINCKRODT-T200800502

PATIENT

DRUGS (3)
  1. METHYLIN [Suspect]
     Route: 048
  2. BUPROPION HCL [Suspect]
     Route: 048
  3. CYCLOBENZAPRINE HCL [Suspect]
     Route: 048

REACTIONS (7)
  - BRADYCARDIA [None]
  - CARDIAC ARREST [None]
  - COMPLETED SUICIDE [None]
  - CONVULSION [None]
  - ELECTROCARDIOGRAM QRS COMPLEX ABNORMAL [None]
  - ELECTROMECHANICAL DISSOCIATION [None]
  - HYPOTENSION [None]
